FAERS Safety Report 21008868 (Version 1)
Quarter: 2022Q2

REPORT INFORMATION
  Report Type: Spontaneous
  Country: US (occurrence: None)
  Receive Date: 20220625
  Receipt Date: 20220625
  Transmission Date: 20220721
  Serious: Yes (Other)
  Sender: FDA-Public Use
  Company Number: None

PATIENT
  Age: 75 Year
  Sex: Female
  Weight: 57.15 kg

DRUGS (11)
  1. PAXLOVID [Suspect]
     Active Substance: NIRMATRELVIR\RITONAVIR
     Indication: COVID-19
     Dosage: FREQUENCY : TWICE A DAY;?
     Route: 048
     Dates: start: 20220624
  2. Amlodipine-OLME [Concomitant]
     Dates: start: 20211201
  3. CARVEDILOL [Concomitant]
     Active Substance: CARVEDILOL
     Dates: start: 20210901
  4. CLONIDINE [Concomitant]
     Active Substance: CLONIDINE
     Dates: start: 20170601
  5. LAMOTRIGINE [Concomitant]
     Active Substance: LAMOTRIGINE
     Dates: start: 20170601
  6. Rosuvstatin [Concomitant]
     Dates: start: 20220525, end: 20220624
  7. TRAZODONE [Concomitant]
     Active Substance: TRAZODONE HYDROCHLORIDE
     Dates: start: 20220525
  8. Avair [Concomitant]
     Dates: start: 20170601
  9. Triamcilone [Concomitant]
     Dates: start: 20210601
  10. VITAMIN D3 [Concomitant]
     Active Substance: CHOLECALCIFEROL
     Dates: start: 20190601
  11. ASPIRIN [Concomitant]
     Active Substance: ASPIRIN
     Dates: start: 20210601

REACTIONS (2)
  - Dysgeusia [None]
  - Dry mouth [None]

NARRATIVE: CASE EVENT DATE: 20220624
